FAERS Safety Report 7504690-6 (Version None)
Quarter: 2011Q2

REPORT INFORMATION
  Report Type: 
  Country: None (occurrence: None)
  Receive Date: 20110525
  Receipt Date: 20110518
  Transmission Date: 20111010
  Serious: Yes (Disabling, Other)
  Sender: FDA-Public Use
  Company Number: US-MERCK-1001USA01811

PATIENT
  Age: 76 Year
  Sex: Female
  Weight: 74 kg

DRUGS (2)
  1. PRAVACHOL [Concomitant]
     Indication: HYPERLIPIDAEMIA
     Route: 065
     Dates: end: 20040101
  2. FOSAMAX [Suspect]
     Indication: OSTEOPOROSIS
     Route: 048
     Dates: start: 20030620, end: 20080421

REACTIONS (24)
  - OSTEOMYELITIS [None]
  - BONE DENSITY DECREASED [None]
  - PERIODONTAL DISEASE [None]
  - DYSGEUSIA [None]
  - ANAEMIA [None]
  - LOOSE TOOTH [None]
  - COLONIC POLYP [None]
  - DENTAL CARIES [None]
  - TOOTH DISORDER [None]
  - POSITRON EMISSION TOMOGRAM ABNORMAL [None]
  - ORAL INFECTION [None]
  - TOOTH DEPOSIT [None]
  - TOOTH RESORPTION [None]
  - HYPERGAMMAGLOBULINAEMIA BENIGN MONOCLONAL [None]
  - UTERINE PROLAPSE [None]
  - HYPERTENSION [None]
  - CATARACT [None]
  - OSTEONECROSIS OF JAW [None]
  - JAW DISORDER [None]
  - TOOTHACHE [None]
  - GINGIVAL BLEEDING [None]
  - GLAUCOMA [None]
  - HYPERLIPIDAEMIA [None]
  - IMPAIRED HEALING [None]
